FAERS Safety Report 4626305-7 (Version None)
Quarter: 2005Q2

REPORT INFORMATION
  Report Type: 
  Country: None (occurrence: None)
  Receive Date: 20050331
  Receipt Date: 20040212
  Transmission Date: 20051028
  Serious: Yes (Other)
  Sender: FDA-Public Use
  Company Number: 200410739BCC

PATIENT
  Age: 43 Year
  Sex: Female
  Weight: 70.3075 kg

DRUGS (2)
  1. ALEVE [Suspect]
     Indication: DYSMENORRHOEA
     Dosage: 440 MG, QD, ORAL
     Route: 048
     Dates: start: 20040210, end: 20040211
  2. ALEVE [Suspect]
     Indication: HEADACHE
     Dosage: 440 MG, QD, ORAL
     Route: 048
     Dates: start: 20040210, end: 20040211

REACTIONS (2)
  - ASTHENIA [None]
  - VAGINAL HAEMORRHAGE [None]
